FAERS Safety Report 24042235 (Version 5)
Quarter: 2025Q1

REPORT INFORMATION
  Report Type: Spontaneous
  Country: JP (occurrence: JP)
  Receive Date: 20240702
  Receipt Date: 20250303
  Transmission Date: 20250409
  Serious: Yes (Death, Disabling, Other)
  Sender: ALEXION PHARMACEUTICALS
  Company Number: 2024A148769

PATIENT
  Age: 88 Year
  Weight: 54 kg

DRUGS (2)
  1. IMFINZI [Suspect]
     Active Substance: DURVALUMAB
     Indication: Hepatocellular carcinoma
     Dosage: 1500 MILLIGRAM, Q4W
  2. IMJUDO [Suspect]
     Active Substance: TREMELIMUMAB\TREMELIMUMAB-ACTL
     Indication: Hepatocellular carcinoma

REACTIONS (2)
  - Cytokine release syndrome [Fatal]
  - Sepsis [Fatal]
